FAERS Safety Report 9732715 (Version 1)
Quarter: 2013Q4

REPORT INFORMATION
  Report Type: Spontaneous
  Country: US (occurrence: US)
  Receive Date: 20131204
  Receipt Date: 20131204
  Transmission Date: 20140711
  Serious: Yes (Hospitalization)
  Sender: FDA-Public Use
  Company Number: US-BAYER-2013-147455

PATIENT
  Age: 22 Year
  Sex: Female
  Weight: 61.22 kg

DRUGS (10)
  1. YASMIN [Suspect]
  2. FLEXERIL [Concomitant]
     Dosage: 10 MG, UNK
  3. LORTAB [HYDROCODONE BITARTRATE,PARACETAMOL] [Concomitant]
     Dosage: 10/500 MG
  4. PREVACID [Concomitant]
     Dosage: 30 MG, UNK
  5. FENTANYL [Concomitant]
     Dosage: UNK
     Route: 042
     Dates: start: 20070915
  6. MORPHINE [Concomitant]
     Dosage: UNK
     Route: 042
     Dates: start: 20070915
  7. ZOFRAN [Concomitant]
     Dosage: UNK
     Route: 042
     Dates: start: 20070915
  8. VALIUM [Concomitant]
     Dosage: 5 MG, UNK
     Route: 042
     Dates: start: 20070915
  9. SOMA [Concomitant]
     Dosage: UNK
     Dates: start: 20070915
  10. BENADRYL [Concomitant]
     Indication: PRURITUS
     Dosage: 25 MG, UNK
     Route: 042
     Dates: start: 20070915

REACTIONS (1)
  - Deep vein thrombosis [Recovering/Resolving]
